FAERS Safety Report 9771896 (Version 1)
Quarter: 2013Q3

REPORT INFORMATION
  Report Type: Spontaneous
  Country: UA (occurrence: None)
  Receive Date: 20130930
  Receipt Date: 20130930
  Transmission Date: 20140515
  Serious: Yes (Other)
  Sender: FDA-Public Use
  Company Number: GER/UKI/12/0022600

PATIENT
  Age: 18 Year
  Sex: Female
  Weight: 54 kg

DRUGS (5)
  1. LAMOTRIGINE [Suspect]
     Indication: EPILEPSY
     Route: 048
     Dates: start: 201011
  2. NEXPLANON [Suspect]
     Indication: CONTRACEPTION
     Route: 059
     Dates: start: 201103
  3. KEPPRA (LEVETIRACETAM) [Suspect]
     Indication: PRODUCT USED FOR UNKNOWN INDICATION
  4. DOXYCYCLINE (DOXYCYCLINE) [Concomitant]
  5. LORATADINE [Concomitant]

REACTIONS (3)
  - Epilepsy [None]
  - Drug interaction [None]
  - Drug intolerance [None]
